FAERS Safety Report 10376457 (Version 1)
Quarter: 2014Q3

REPORT INFORMATION
  Report Type: Spontaneous
  Country: GB (occurrence: None)
  Receive Date: 20140806
  Receipt Date: 20140806
  Transmission Date: 20150326
  Serious: Yes (Other)
  Sender: FDA-Public Use
  Company Number: 229065

PATIENT
  Sex: Female

DRUGS (2)
  1. PICATO [Suspect]
     Active Substance: INGENOL MEBUTATE
     Indication: ACTINIC KERATOSIS
     Route: 061
     Dates: start: 20131230, end: 20131230
  2. FLUOXETINE (FLUOXETINE HYDROCHLORIDE) (20 MG) [Concomitant]

REACTIONS (6)
  - Incorrect drug administration duration [None]
  - Application site oedema [None]
  - Application site erythema [None]
  - Application site pain [None]
  - Pain [None]
  - Application site vesicles [None]

NARRATIVE: CASE EVENT DATE: 20131230
